FAERS Safety Report 8572207 (Version 3)
Quarter: 2014Q1

REPORT INFORMATION
  Report Type: Spontaneous
  Country: FR (occurrence: FR)
  Receive Date: 20120521
  Receipt Date: 20140213
  Transmission Date: 20141002
  Serious: Yes (Other)
  Sender: FDA-Public Use
  Company Number: FR-AMGEN-FRASP2012029457

PATIENT
  Age: 84 Year
  Sex: Female
  Weight: 50 kg

DRUGS (3)
  1. PROLIA [Suspect]
     Indication: PRODUCT USED FOR UNKNOWN INDICATION
     Dosage: UNK
     Route: 058
     Dates: start: 201203
  2. MIMPARA [Concomitant]
     Indication: HYPERPARATHYROIDISM SECONDARY
     Dosage: 60 UNK, UNK
     Route: 048
     Dates: start: 20110210
  3. RENAGEL                            /01459901/ [Concomitant]
     Indication: HYPERPHOSPHATAEMIA
     Dosage: UNK
     Dates: start: 20080618, end: 20120426

REACTIONS (3)
  - Blood phosphorus abnormal [Unknown]
  - Hyperparathyroidism [Unknown]
  - Hypocalcaemia [Recovered/Resolved]
